FAERS Safety Report 5236166-3 (Version None)
Quarter: 2007Q1

REPORT INFORMATION
  Report Type: 
  Country: None (occurrence: None)
  Receive Date: 20061208
  Receipt Date: 20060605
  Transmission Date: 20070707
  Serious: Yes (Other)
  Sender: FDA-Public Use
  Company Number: 2006UW11069

PATIENT
  Age: 65 Year
  Sex: Male
  Weight: 86.182 kg

DRUGS (4)
  1. CRESTOR [Suspect]
     Indication: BLOOD TRIGLYCERIDES INCREASED
     Dosage: 10 MG QD PO
     Route: 048
  2. OMEGA 3 [Concomitant]
  3. VITAMINS E C B COMPLEX [Concomitant]
  4. CENTRUM [Concomitant]

REACTIONS (2)
  - OEDEMA PERIPHERAL [None]
  - PAIN IN EXTREMITY [None]
